FAERS Safety Report 17297422 (Version 1)
Quarter: 2020Q1

REPORT INFORMATION
  Report Type: Spontaneous
  Country: JP (occurrence: JP)
  Receive Date: 20200122
  Receipt Date: 20200122
  Transmission Date: 20200409
  Serious: Yes (Death, Other)
  Sender: FDA-Public Use
  Company Number: JP-VIIV HEALTHCARE LIMITED-JP2020JPN010619

PATIENT

DRUGS (2)
  1. RETROVIR [Suspect]
     Active Substance: ZIDOVUDINE
     Dosage: 200 MG, BID
     Route: 048
  2. RETROVIR [Suspect]
     Active Substance: ZIDOVUDINE
     Dosage: 100 MG
     Route: 048

REACTIONS (3)
  - Death [Fatal]
  - Vomiting [Unknown]
  - Drug ineffective [Unknown]
